FAERS Safety Report 7943316-4 (Version None)
Quarter: 2011Q4

REPORT INFORMATION
  Report Type: 
  Country: None (occurrence: None)
  Receive Date: 20111128
  Receipt Date: 20111123
  Transmission Date: 20120403
  Serious: Yes (Life-Threatening, Hospitalization)
  Sender: FDA-Public Use
  Company Number: PHHO2011TR019201

PATIENT
  Sex: Female
  Weight: 44.5 kg

DRUGS (8)
  1. DESFERAL [Suspect]
     Indication: IRON OVERLOAD
     Dosage: 40 MG/KG, UNK
     Dates: start: 20111104, end: 20111113
  2. ACETAMINOPHEN [Suspect]
  3. CALCIUM [Concomitant]
     Dosage: 12 CC, UNK
     Route: 042
  4. EXJADE [Suspect]
     Indication: IRON OVERLOAD
     Dosage: 20 MG/KG, UNK
     Dates: start: 20111104, end: 20111113
  5. AVIL [Concomitant]
     Dosage: 1 MG/KG, UNK
  6. METHYLPREDNISOLONE [Concomitant]
     Dosage: 0.5 MG/KG, UNK
  7. CEFTRIAXONE [Concomitant]
  8. ATERAX [Concomitant]
     Dosage: 25 MG/KG, UNK

REACTIONS (5)
  - RASH [None]
  - DRUG RASH WITH EOSINOPHILIA AND SYSTEMIC SYMPTOMS [None]
  - CALCIUM DEFICIENCY [None]
  - INFECTION [None]
  - ASTHENIA [None]
